FAERS Safety Report 5868659-X (Version None)
Quarter: 2008Q3

REPORT INFORMATION
  Report Type: 
  Country: None (occurrence: None)
  Receive Date: 20080903
  Receipt Date: 20080826
  Transmission Date: 20090109
  Serious: Yes (Other)
  Sender: FDA-Public Use
  Company Number: US-ASTRAZENECA-2008UW17442

PATIENT
  Age: 75 Year
  Sex: Female

DRUGS (7)
  1. PRILOSEC [Suspect]
     Route: 048
  2. REVATIO [Suspect]
     Indication: PULMONARY ARTERIAL HYPERTENSION
  3. ASPIRIN [Suspect]
  4. ALLOPURINOL [Suspect]
  5. GLIBENCLAMIDE [Suspect]
  6. LISINOPRIL [Suspect]
  7. GLUCOPHAGE [Suspect]

REACTIONS (1)
  - DEAFNESS UNILATERAL [None]
